FAERS Safety Report 15557031 (Version 1)
Quarter: 2018Q4

REPORT INFORMATION
  Report Type: Spontaneous
  Country: RU (occurrence: RU)
  Receive Date: 20181026
  Receipt Date: 20181026
  Transmission Date: 20190205
  Serious: Yes (Death)
  Sender: FDA-Public Use
  Company Number: PHHY2018RU139291

PATIENT
  Age: 46 Year
  Sex: Male

DRUGS (2)
  1. METHOTREXATE (METHOTREXATE SODIUM) [Suspect]
     Active Substance: METHOTREXATE SODIUM
     Indication: PSORIATIC ARTHROPATHY
     Dosage: 500 MG, QW
     Route: 030
     Dates: start: 20171109, end: 20171207
  2. NIMESULID [Concomitant]
     Active Substance: NIMESULIDE
     Indication: ARTHRITIS
     Dosage: UNK
     Route: 048
     Dates: end: 20171211

REACTIONS (1)
  - Pancytopenia [Fatal]

NARRATIVE: CASE EVENT DATE: 20171207
